FAERS Safety Report 5122106-4 (Version None)
Quarter: 2006Q4

REPORT INFORMATION
  Report Type: 
  Country: None (occurrence: None)
  Receive Date: 20061006
  Receipt Date: 20061006
  Transmission Date: 20070319
  Serious: No
  Sender: FDA-Public Use
  Company Number: None

PATIENT
  Sex: Male
  Weight: 54.4316 kg

DRUGS (4)
  1. DAYTRANA [Suspect]
     Indication: ATTENTION DEFICIT/HYPERACTIVITY DISORDER
     Dosage: 20 MG DAILY TRANSDERMAL
     Route: 062
     Dates: start: 20060825, end: 20061001
  2. STRATTERA [Concomitant]
  3. CONCERTA [Concomitant]
  4. DAYTRANA [Concomitant]

REACTIONS (5)
  - ERYTHEMA [None]
  - EXCORIATION [None]
  - PRURITUS [None]
  - RASH [None]
  - SKIN IRRITATION [None]
